FAERS Safety Report 16497201 (Version 2)
Quarter: 2020Q4

REPORT INFORMATION
  Report Type: Spontaneous
  Country: SE (occurrence: SE)
  Receive Date: 20190628
  Receipt Date: 20201027
  Transmission Date: 20210113
  Serious: Yes (Other)
  Sender: FDA-Public Use
  Company Number: SE-JAZZ-2019-SE-004991

PATIENT
  Age: 19 Year
  Sex: Female
  Weight: 94 kg

DRUGS (2)
  1. MODAFINIL. [Concomitant]
     Active Substance: MODAFINIL
     Indication: PRODUCT USED FOR UNKNOWN INDICATION
     Dosage: UNKNOWN DOSE
     Dates: start: 20181015
  2. XYREM [Suspect]
     Active Substance: SODIUM OXYBATE
     Indication: NARCOLEPSY
     Dosage: 2.75 GRAM, BID
     Route: 048
     Dates: start: 20190218, end: 20190814

REACTIONS (4)
  - Respiratory depression [Recovered/Resolved]
  - Anxiety [Recovered/Resolved]
  - Extra dose administered [Unknown]
  - Nausea [Recovered/Resolved]

NARRATIVE: CASE EVENT DATE: 20190317
